FAERS Safety Report 4651005-7 (Version None)
Quarter: 2005Q2

REPORT INFORMATION
  Report Type: 
  Country: None (occurrence: None)
  Receive Date: 20050429
  Receipt Date: 20050419
  Transmission Date: 20051028
  Serious: Yes (Other)
  Sender: FDA-Public Use
  Company Number: 2005062731

PATIENT
  Age: 62 Year
  Sex: Male
  Weight: 76.2043 kg

DRUGS (4)
  1. VIAGRA [Suspect]
     Indication: ILL-DEFINED DISORDER
     Dosage: 50 MG (50 MG, AS NECESSARY), ORAL
     Route: 048
     Dates: start: 20020101
  2. INSULIN [Concomitant]
  3. ANTIHYPERTENSIVES (ANTIHYPERTENSIVES) [Concomitant]
  4. CENTRUM SILVER (ASCORBIC ACID, CALCIUM, MINERALS NOS, RESTINOL, TOCOPH [Concomitant]

REACTIONS (11)
  - BLINDNESS [None]
  - EYE DISORDER [None]
  - IMPAIRED DRIVING ABILITY [None]
  - ISCHAEMIA [None]
  - MYOCARDIAL INFARCTION [None]
  - OPTIC NERVE DISORDER [None]
  - PALLOR [None]
  - PNEUMONIA [None]
  - SCAR [None]
  - TRANSIENT ISCHAEMIC ATTACK [None]
  - VISUAL DISTURBANCE [None]
